FAERS Safety Report 20455481 (Version 1)
Quarter: 2022Q1

REPORT INFORMATION
  Report Type: Spontaneous
  Country: US (occurrence: US)
  Receive Date: 20220210
  Receipt Date: 20220210
  Transmission Date: 20220424
  Serious: No
  Sender: FDA-Public Use
  Company Number: US-PFIZER INC-202200034614

PATIENT
  Age: 30 Year
  Sex: Female

DRUGS (6)
  1. ZIPRASIDONE HYDROCHLORIDE [Suspect]
     Active Substance: ZIPRASIDONE HYDROCHLORIDE
     Indication: Schizophrenia
     Dosage: 80 MG, 2X/DAY
  2. SEROQUEL [Concomitant]
     Active Substance: QUETIAPINE FUMARATE
     Dosage: 200 MG, 2X/DAY
  3. DOK [Concomitant]
     Active Substance: DOCUSATE SODIUM
     Indication: Constipation
     Dosage: 100 MG
  4. BENADRYL [Concomitant]
     Active Substance: DIPHENHYDRAMINE HYDROCHLORIDE
     Dosage: UNK
  5. BENZTROPINE MESYLATE [Concomitant]
     Active Substance: BENZTROPINE MESYLATE
     Dosage: 1 MG, 2X/DAY
  6. PALIPERIDONE [Concomitant]
     Active Substance: PALIPERIDONE
     Dosage: UNK

REACTIONS (5)
  - Abnormal behaviour [Unknown]
  - Hunger [Unknown]
  - Weight increased [Unknown]
  - Product substitution issue [Unknown]
  - Drug ineffective [Unknown]
